FAERS Safety Report 5825605-2 (Version None)
Quarter: 2008Q3

REPORT INFORMATION
  Report Type: 
  Country: None (occurrence: None)
  Receive Date: 20080729
  Receipt Date: 20080729
  Transmission Date: 20090109
  Serious: Yes (Death)
  Sender: FDA-Public Use
  Company Number: A0739600A

PATIENT
  Age: 18 Year
  Sex: Female

DRUGS (1)
  1. PAXIL [Suspect]
     Indication: ANXIETY
     Route: 048

REACTIONS (9)
  - ALCOHOL ABUSE [None]
  - COMPLETED SUICIDE [None]
  - DRUG ABUSE [None]
  - INSOMNIA [None]
  - NIGHTMARE [None]
  - OVERDOSE [None]
  - PERSONALITY CHANGE [None]
  - SUICIDAL IDEATION [None]
  - TREATMENT NONCOMPLIANCE [None]
